FAERS Safety Report 16980833 (Version 1)
Quarter: 2019Q4

REPORT INFORMATION
  Report Type: Spontaneous
  Country: CA (occurrence: CA)
  Receive Date: 20191031
  Receipt Date: 20191031
  Transmission Date: 20200122
  Serious: Yes (Other)
  Sender: FDA-Public Use
  Company Number: CA-ALLERGAN-1943561US

PATIENT
  Sex: Male
  Weight: 87.98 kg

DRUGS (1)
  1. VIIBRYD [Suspect]
     Active Substance: VILAZODONE HYDROCHLORIDE
     Indication: DEPRESSION
     Dosage: 30 MG, QD
     Route: 048

REACTIONS (6)
  - Hypomania [Recovering/Resolving]
  - Aggression [Recovering/Resolving]
  - Impaired work ability [Recovering/Resolving]
  - Agitation [Recovering/Resolving]
  - Disturbance in attention [Recovering/Resolving]
  - Energy increased [Recovering/Resolving]
